FAERS Safety Report 8198066-9 (Version None)
Quarter: 2012Q1

REPORT INFORMATION
  Report Type: 
  Country: None (occurrence: None)
  Receive Date: 20120309
  Receipt Date: 20120223
  Transmission Date: 20120608
  Serious: No
  Sender: FDA-Public Use
  Company Number: US-AMGEN-USASP2011017252

PATIENT
  Sex: Female

DRUGS (5)
  1. LUNESTA [Concomitant]
  2. ZANTAC [Concomitant]
  3. PROLIA [Suspect]
     Indication: OSTEOPOROSIS POSTMENOPAUSAL
     Dosage: UNK UNK, Q6MO
     Dates: start: 20101001
  4. CELEXA [Concomitant]
  5. VITAMIN TAB [Concomitant]

REACTIONS (1)
  - BACK PAIN [None]
